FAERS Safety Report 4611434-4 (Version None)
Quarter: 2005Q1

REPORT INFORMATION
  Report Type: 
  Country: None (occurrence: None)
  Receive Date: 20050315
  Receipt Date: 20050315
  Transmission Date: 20050727
  Serious: No
  Sender: FDA-Public Use
  Company Number: None

PATIENT
  Age: 61 Year
  Sex: Male
  Weight: 90.7 kg

DRUGS (1)
  1. LOVASTATIN [Suspect]

REACTIONS (1)
  - BLOOD CREATINE PHOSPHOKINASE INCREASED [None]
